FAERS Safety Report 7304080-5 (Version None)
Quarter: 2011Q1

REPORT INFORMATION
  Report Type: 
  Country: None (occurrence: None)
  Receive Date: 20110221
  Receipt Date: 20110210
  Transmission Date: 20110831
  Serious: Yes (Other)
  Sender: FDA-Public Use
  Company Number: PHHY2011FR03698

PATIENT
  Sex: Female
  Weight: 57 kg

DRUGS (3)
  1. METHYLPREDNISOLONE [Concomitant]
     Indication: MULTIPLE SCLEROSIS
     Dosage: 1 G DAILY
     Dates: start: 20101215, end: 20101217
  2. EXTAVIA [Suspect]
     Dosage: UNK UKN, UNK
     Dates: start: 20101222
  3. LOVENOX [Concomitant]
     Dosage: 0.4 ML, UNK
     Route: 058
     Dates: start: 20101215, end: 20101217

REACTIONS (2)
  - PHLEBITIS [None]
  - INFLUENZA [None]
